FAERS Safety Report 8780978 (Version 4)
Quarter: 2012Q4

REPORT INFORMATION
  Report Type: 
  Country: US (occurrence: US)
  Receive Date: 20120913
  Receipt Date: 20121206
  Transmission Date: 20130627
  Serious: Yes (Hospitalization, Other)
  Sender: FDA-Public Use
  Company Number: US-009507513-1111USA03910

PATIENT

DRUGS (5)
  1. FOSAMAX [Suspect]
     Indication: OSTEOPENIA
     Dosage: 70 mg, qw
     Route: 048
     Dates: start: 2001, end: 200804
  2. FOSAMAX [Suspect]
     Indication: OSTEOPOROSIS
  3. ALENDRONATE SODIUM [Suspect]
     Indication: OSTEOPENIA
     Dosage: 70 mg, qw
     Route: 048
     Dates: start: 200805, end: 201003
  4. ALENDRONATE SODIUM [Suspect]
     Indication: OSTEOPOROSIS
     Dosage: 10 mg, UNK
     Route: 048
     Dates: start: 20080521
  5. CALCIUM (UNSPECIFIED) [Concomitant]

REACTIONS (19)
  - Femur fracture [Unknown]
  - Intramedullary rod insertion [Unknown]
  - Medical device implantation [Unknown]
  - Intramedullary rod insertion [Unknown]
  - Medical device implantation [Unknown]
  - Medical device removal [Unknown]
  - Fall [Unknown]
  - Femur fracture [Unknown]
  - Device failure [Unknown]
  - Hyperlipidaemia [Unknown]
  - Limb asymmetry [Unknown]
  - Musculoskeletal disorder [Unknown]
  - Depression [Unknown]
  - Gastrooesophageal reflux disease [Unknown]
  - Pain in extremity [Unknown]
  - Oedema [Unknown]
  - Hypothyroidism [Unknown]
  - Hypokalaemia [Unknown]
  - Breast lump removal [Unknown]
